FAERS Safety Report 4389206-8 (Version None)
Quarter: 2004Q2

REPORT INFORMATION
  Report Type: 
  Country: None (occurrence: None)
  Receive Date: 20040630
  Receipt Date: 20040616
  Transmission Date: 20050107
  Serious: Yes (Hospitalization)
  Sender: FDA-Public Use
  Company Number: 2004040619

PATIENT
  Age: 63 Year
  Sex: Female

DRUGS (7)
  1. AMLODIPINE [Suspect]
     Indication: HYPERTENSION
     Dosage: 5 MG (5 MG, 1 IN 1 D), ORAL
     Route: 048
     Dates: start: 20040604, end: 20040609
  2. ACETYLSALICYLIC ACID SRT [Concomitant]
  3. ATORVASTATIN CALCIUM [Concomitant]
  4. TRIMETHOPRIM [Concomitant]
  5. QUINAPRIL HCL [Concomitant]
  6. NITROFURANTOIN [Concomitant]
  7. IOPAMIDOL [Concomitant]

REACTIONS (2)
  - ANGIONEUROTIC OEDEMA [None]
  - CHOKING [None]
